FAERS Safety Report 24763034 (Version 1)
Quarter: 2024Q4

REPORT INFORMATION
  Report Type: Spontaneous
  Country: US (occurrence: None)
  Receive Date: 20241222
  Receipt Date: 20241222
  Transmission Date: 20250115
  Serious: No
  Sender: UNICHEM
  Company Number: US-ARIS GLOBAL-UCM202401-000006

PATIENT
  Age: 41 Year
  Sex: Male

DRUGS (2)
  1. BUSPIRONE HYDROCHLORIDE [Suspect]
     Active Substance: BUSPIRONE HYDROCHLORIDE
     Indication: Anxiety
     Dates: start: 20231227, end: 20240102
  2. TRAZODONE [Concomitant]
     Active Substance: TRAZODONE HYDROCHLORIDE
     Indication: Product used for unknown indication

REACTIONS (3)
  - Genital burning sensation [Unknown]
  - Paraesthesia [Unknown]
  - Drug ineffective [Unknown]
